FAERS Safety Report 10166708 (Version 1)
Quarter: 2014Q2

REPORT INFORMATION
  Report Type: Spontaneous
  Country: US (occurrence: None)
  Receive Date: 20140509
  Receipt Date: 20140509
  Transmission Date: 20141212
  Serious: Yes (Hospitalization)
  Sender: FDA-Public Use
  Company Number: None

PATIENT
  Age: 62 Year
  Sex: Female

DRUGS (2)
  1. SOVALDI 400MG QD GILEAD [Suspect]
     Dosage: 1 TAB, QD, ORAL
     Route: 048
     Dates: start: 20140402, end: 20140430
  2. RIBAPAK 400/600MG TABS [Concomitant]

REACTIONS (1)
  - Ammonia increased [None]
